FAERS Safety Report 14704214 (Version 1)
Quarter: 2018Q2

REPORT INFORMATION
  Report Type: Spontaneous
  Country: US (occurrence: US)
  Receive Date: 20180402
  Receipt Date: 20180402
  Transmission Date: 20180711
  Serious: No
  Sender: FDA-Public Use
  Company Number: US-ALLERGAN-1713424US

PATIENT
  Sex: Female

DRUGS (1)
  1. ASACOL HD [Suspect]
     Active Substance: MESALAMINE
     Indication: COLITIS ULCERATIVE
     Dosage: 800 MG, BID
     Route: 048
     Dates: start: 1996

REACTIONS (6)
  - Oropharyngeal pain [Unknown]
  - Incorrect dose administered [Unknown]
  - Medication residue present [Recovered/Resolved]
  - Product use complaint [Unknown]
  - Dysphagia [Unknown]
  - Regurgitation [Recovered/Resolved]
